FAERS Safety Report 7184022-6 (Version None)
Quarter: 2010Q4

REPORT INFORMATION
  Report Type: 
  Country: None (occurrence: None)
  Receive Date: 20101222
  Receipt Date: 20101208
  Transmission Date: 20110411
  Serious: Yes (Hospitalization, Other)
  Sender: FDA-Public Use
  Company Number: PHHY2010JP80979

PATIENT
  Sex: Male
  Weight: 62 kg

DRUGS (10)
  1. SANDOSTATIN LAR [Suspect]
     Indication: ACROMEGALY
     Dosage: 10 MG, UNK
     Route: 030
     Dates: start: 20101004
  2. CELECTOL [Concomitant]
     Dosage: 200 MG, UNK
     Route: 048
     Dates: start: 20080601
  3. CALCIUM CARBONATE [Concomitant]
     Dosage: 3 G, UNK
     Route: 048
     Dates: start: 20060101
  4. BLOPRESS [Concomitant]
     Dosage: 4 MG, UNK
     Route: 048
     Dates: start: 20040601
  5. TAKEPRON [Concomitant]
     Dosage: 15 MG, UNK
     Route: 048
     Dates: start: 20080601
  6. CINACALCET HYDROCHLORIDE [Concomitant]
     Dosage: 25 MG, UNK
     Route: 048
     Dates: start: 20080101
  7. CALCIUM POLYSTYRENE SULFONATE [Concomitant]
     Dosage: UNK
     Route: 048
     Dates: start: 20070101
  8. FOSRENOL [Concomitant]
     Dosage: 2.25 MG, UNK
     Route: 048
     Dates: start: 20090801
  9. BIFIDOBACTERIUM BIFIDUM [Concomitant]
     Dosage: 3 G, UNK
     Route: 048
     Dates: start: 20100601
  10. NESP [Concomitant]
     Dosage: 100 MG, UNK
     Route: 042

REACTIONS (4)
  - CENTRAL NERVOUS SYSTEM MASS [None]
  - CEREBRAL HAEMORRHAGE [None]
  - FALL [None]
  - HEMIPARESIS [None]
